FAERS Safety Report 8722671 (Version 3)
Quarter: 2013Q1

REPORT INFORMATION
  Report Type: Spontaneous
  Country: AU (occurrence: AU)
  Receive Date: 20120814
  Receipt Date: 20130306
  Transmission Date: 20140127
  Serious: Yes (Disabling, Other)
  Sender: FDA-Public Use
  Company Number: AU-009507513-1208AUS005017

PATIENT
  Age: 56 Year
  Sex: Male

DRUGS (5)
  1. VICTRELIS 200 MG [Suspect]
     Indication: HEPATITIS C
     Dosage: 2400 MG DAILY
     Route: 048
     Dates: start: 20120508, end: 20120720
  2. RIBAVIRIN [Suspect]
     Dosage: 1200 MG DAILY
     Dates: start: 20120410, end: 20120720
  3. INTERFERON ALFA-2B [Suspect]
     Dosage: 180 MICROGRAM, QW
     Dates: start: 20120410, end: 20120720
  4. INDERAL [Suspect]
  5. PEGASYS [Suspect]
     Dosage: 180 MICROGRAM, QW
     Dates: start: 20120410, end: 20120720

REACTIONS (4)
  - Deafness neurosensory [Not Recovered/Not Resolved]
  - Feeling abnormal [Unknown]
  - Dizziness [Unknown]
  - Drug ineffective [Unknown]
